FAERS Safety Report 17890055 (Version 1)
Quarter: 2020Q2

REPORT INFORMATION
  Report Type: Spontaneous
  Country: US (occurrence: US)
  Receive Date: 20200612
  Receipt Date: 20200612
  Transmission Date: 20200714
  Serious: Yes (Other)
  Sender: FDA-Public Use
  Company Number: US-PFIZER INC-2020228157

PATIENT
  Sex: Female

DRUGS (5)
  1. ASPIRIN (E.C.) [Interacting]
     Active Substance: ASPIRIN
     Indication: THROMBOSIS PROPHYLAXIS
  2. ACETAMINOPHEN. [Concomitant]
     Active Substance: ACETAMINOPHEN
     Indication: PAIN MANAGEMENT
     Dosage: 1000 MG, 3X/DAY (EVERY 8 HOURS)
  3. PANTOPRAZOLE [Concomitant]
     Active Substance: PANTOPRAZOLE
     Dosage: 40 MG, 1X/DAY
  4. ASPIRIN (E.C.) [Interacting]
     Active Substance: ASPIRIN
     Indication: PAIN MANAGEMENT
     Dosage: 81 MG, 2X/DAY (ENTERIC COATED)
  5. CELECOXIB. [Suspect]
     Active Substance: CELECOXIB
     Indication: PAIN MANAGEMENT
     Dosage: 200 MG, 2X/DAY

REACTIONS (3)
  - Embolism venous [Unknown]
  - Product administration error [Unknown]
  - Drug interaction [Unknown]
